FAERS Safety Report 9832221 (Version 2)
Quarter: 2014Q2

REPORT INFORMATION
  Report Type: Report from Study
  Country: NL (occurrence: NL)
  Receive Date: 20140121
  Receipt Date: 20140426
  Transmission Date: 20141212
  Serious: Yes (Death)
  Sender: FDA-Public Use
  Company Number: PHHY2014NL006712

PATIENT
  Sex: Male

DRUGS (6)
  1. ACLASTA [Suspect]
     Indication: OSTEOPOROSIS
     Dosage: 5 MG, ONCE EVERY 52 WEEKS
     Route: 042
     Dates: start: 20100903
  2. ACLASTA [Suspect]
     Dosage: 5 MG, ONCE EVERY 52 WEEKS
     Route: 042
     Dates: start: 20111105
  3. ACLASTA [Suspect]
     Dosage: 5 MG, ONCE EVERY 52 WEEKS
     Route: 042
     Dates: start: 20121113
  4. LANTUS [Concomitant]
     Dosage: UNK UKN, UNK
     Route: 058
  5. HUMALOG [Concomitant]
     Dosage: UNK UKN, UNK
     Route: 058
  6. PANTOZOL [Concomitant]
     Dosage: UNK UKN, UNK
     Route: 048

REACTIONS (1)
  - Death [Fatal]
